FAERS Safety Report 17756830 (Version 4)
Quarter: 2020Q2

REPORT INFORMATION
  Report Type: Spontaneous
  Country: US (occurrence: US)
  Receive Date: 20200507
  Receipt Date: 20200619
  Transmission Date: 20200714
  Serious: Yes (Other)
  Sender: FDA-Public Use
  Company Number: US-PFIZER INC-2020178741

PATIENT
  Sex: Female

DRUGS (1)
  1. ADVIL [Suspect]
     Active Substance: IBUPROFEN
     Indication: PAIN
     Dosage: 4 DF, DAILY, (TWO IN MORNING TWO AT NIGHT ADVIL/2 IN THE AM, AND 2 IN THE PM)
     Dates: start: 20200404

REACTIONS (4)
  - Poor quality product administered [Unknown]
  - COVID-19 [Unknown]
  - Product physical issue [Unknown]
  - Chest pain [Unknown]

NARRATIVE: CASE EVENT DATE: 2020
